FAERS Safety Report 5599967-8 (Version None)
Quarter: 2008Q1

REPORT INFORMATION
  Report Type: 
  Country: None (occurrence: None)
  Receive Date: 20080123
  Receipt Date: 20080118
  Transmission Date: 20080703
  Serious: Yes (Life-Threatening, Hospitalization, Other)
  Sender: FDA-Public Use
  Company Number: BR-ASTRAZENECA-2007UW27494

PATIENT
  Age: 23735 Day
  Sex: Female

DRUGS (1)
  1. CLOPIDOGREL [Suspect]
     Indication: ACUTE CORONARY SYNDROME
     Route: 048
     Dates: start: 20071202, end: 20071207

REACTIONS (1)
  - ATRIOVENTRICULAR BLOCK COMPLETE [None]
